FAERS Safety Report 5856618-2 (Version None)
Quarter: 2008Q3

REPORT INFORMATION
  Report Type: 
  Country: None (occurrence: None)
  Receive Date: 20080822
  Receipt Date: 20080822
  Transmission Date: 20090109
  Serious: Yes (Other)
  Sender: FDA-Public Use
  Company Number: None

PATIENT
  Age: 64 Year
  Sex: Female
  Weight: 95.709 kg

DRUGS (2)
  1. BYETTA [Suspect]
     Indication: GLUCOSE TOLERANCE IMPAIRED
     Dosage: 1 SHOT TWICE A DAY SQ
     Route: 058
     Dates: start: 20060901, end: 20080820
  2. BYETTA [Suspect]
     Indication: INSULIN RESISTANCE
     Dosage: 1 SHOT TWICE A DAY SQ
     Route: 058
     Dates: start: 20060901, end: 20080820

REACTIONS (9)
  - ABDOMINAL PAIN UPPER [None]
  - CONSTIPATION [None]
  - DIARRHOEA [None]
  - DIZZINESS [None]
  - HEADACHE [None]
  - INFLUENZA [None]
  - MALAISE [None]
  - NAUSEA [None]
  - VOMITING [None]
